FAERS Safety Report 6708843-6 (Version None)
Quarter: 2010Q2

REPORT INFORMATION
  Report Type: 
  Country: None (occurrence: None)
  Receive Date: 20100503
  Receipt Date: 20100503
  Transmission Date: 20101027
  Serious: Yes (Hospitalization)
  Sender: FDA-Public Use
  Company Number: None

PATIENT
  Age: 30 Year
  Sex: Female
  Weight: 95.709 kg

DRUGS (2)
  1. LEVAQUIN [Suspect]
     Indication: OTITIS MEDIA
     Dosage: DAILY PO
     Route: 048
     Dates: start: 20100408, end: 20100416
  2. LEVAQUIN [Suspect]
     Indication: SINUSITIS
     Dosage: DAILY PO
     Route: 048
     Dates: start: 20100408, end: 20100416

REACTIONS (7)
  - ARTHRALGIA [None]
  - GAIT DISTURBANCE [None]
  - MOVEMENT DISORDER [None]
  - MYALGIA [None]
  - PAIN [None]
  - SKIN TIGHTNESS [None]
  - TENSION [None]
